FAERS Safety Report 5720008-3 (Version None)
Quarter: 2008Q2

REPORT INFORMATION
  Report Type: 
  Country: None (occurrence: None)
  Receive Date: 20080424
  Receipt Date: 20080419
  Transmission Date: 20081010
  Serious: Yes (Hospitalization, Other)
  Sender: FDA-Public Use
  Company Number: 2008SP001669

PATIENT
  Age: 59 Year
  Sex: Female
  Weight: 80.7403 kg

DRUGS (2)
  1. PEG-INTRON [Suspect]
     Indication: HEPATITIS C
     Dosage: SC
     Route: 058
     Dates: start: 20071116, end: 20080303
  2. RIBAVIRIN [Suspect]
     Indication: HEPATITIS C
     Dosage: PO
     Route: 048
     Dates: start: 20071116, end: 20080303

REACTIONS (23)
  - ALOPECIA [None]
  - ANAEMIA [None]
  - ASTHENIA [None]
  - BONE PAIN [None]
  - CHEST PAIN [None]
  - CONTUSION [None]
  - CRYING [None]
  - DEHYDRATION [None]
  - FACIAL BONES FRACTURE [None]
  - FALL [None]
  - FATIGUE [None]
  - FEELING ABNORMAL [None]
  - FEELING COLD [None]
  - LOSS OF CONSCIOUSNESS [None]
  - MEMORY IMPAIRMENT [None]
  - NAUSEA [None]
  - ORAL INTAKE REDUCED [None]
  - RASH ERYTHEMATOUS [None]
  - RASH PRURITIC [None]
  - THROAT IRRITATION [None]
  - VERTEBRAL INJURY [None]
  - WEIGHT DECREASED [None]
  - WHITE BLOOD CELL COUNT DECREASED [None]
